FAERS Safety Report 5911928-5 (Version None)
Quarter: 2008Q4

REPORT INFORMATION
  Report Type: 
  Country: None (occurrence: None)
  Receive Date: 20081006
  Receipt Date: 20080923
  Transmission Date: 20090506
  Serious: Yes (Death)
  Sender: FDA-Public Use
  Company Number: RENA-1000265

PATIENT

DRUGS (1)
  1. RENAGEL (SEVELAMER HYDROCHLORIDE)            0.8G [Suspect]
     Indication: HYPERPHOSPHATAEMIA
     Dosage: ORAL
     Route: 048

REACTIONS (1)
  - DEATH [None]
